FAERS Safety Report 21859654 (Version 1)
Quarter: 2023Q1

REPORT INFORMATION
  Report Type: Spontaneous
  Country: US (occurrence: US)
  Receive Date: 20230113
  Receipt Date: 20230113
  Transmission Date: 20230418
  Serious: No
  Sender: FDA-Public Use
  Company Number: US-SA-SAC20230112001319

PATIENT
  Age: 26 Year
  Sex: Female
  Weight: 145 kg

DRUGS (1)
  1. DUPIXENT [Suspect]
     Active Substance: DUPILUMAB
     Dosage: UNK UNK, 1X
     Route: 058
     Dates: start: 20230101, end: 20230101

REACTIONS (2)
  - Dry eye [Unknown]
  - Oral herpes [Unknown]

NARRATIVE: CASE EVENT DATE: 20230109
